FAERS Safety Report 10155381 (Version 1)
Quarter: 2014Q2

REPORT INFORMATION
  Report Type: Spontaneous
  Country: JP (occurrence: JP)
  Receive Date: 20140506
  Receipt Date: 20140506
  Transmission Date: 20141212
  Serious: Yes (Death)
  Sender: FDA-Public Use
  Company Number: JP-MALLINCKRODT-T201402066

PATIENT
  Age: 54 Year
  Sex: Male
  Weight: 51.9 kg

DRUGS (14)
  1. METHADONE [Suspect]
     Indication: CANCER PAIN
     Dosage: 5 MG, (15 MG DAILY DOSE)
     Route: 048
     Dates: start: 20140226, end: 20140305
  2. METHADONE [Suspect]
     Dosage: 5 MG, (20 MG DAILY DOSE)
     Route: 048
     Dates: start: 20140305, end: 20140310
  3. METHADONE [Suspect]
     Dosage: 5 MG, (15 MG DAILY DOSE)
     Route: 048
     Dates: start: 20140310, end: 20140320
  4. OPSO [Concomitant]
     Dosage: UNK, PRN
     Route: 048
     Dates: start: 20140225
  5. DEPAS [Concomitant]
     Dosage: 1 MG, UNK
     Route: 048
  6. REMERON [Concomitant]
     Dosage: 15 MG, UNK
     Route: 048
  7. NAIXAN [Concomitant]
     Dosage: 300 MG, UNK
     Route: 048
  8. PANVITAN [Concomitant]
     Dosage: 1 G, UNK
     Route: 048
  9. MAGMITT [Concomitant]
     Dosage: 990 MG, UNK
     Route: 048
  10. LANSOPRAZOLE [Concomitant]
     Dosage: 30 MG, UNK
     Route: 048
  11. BROTIZOLAM [Concomitant]
     Dosage: 0.25 MG, UNK
     Route: 048
  12. NOVAMIN [Concomitant]
     Dosage: 15 MG, UNK
     Route: 065
  13. SENNOSIDE [Concomitant]
     Dosage: 12 MG, UNK
     Route: 048
  14. FENTOS [Concomitant]

REACTIONS (2)
  - Pleural mesothelioma malignant [Fatal]
  - Delirium [Recovered/Resolved]
